FAERS Safety Report 4819099-3 (Version None)
Quarter: 2005Q4

REPORT INFORMATION
  Report Type: 
  Country: None (occurrence: None)
  Receive Date: 20051101
  Receipt Date: 20051101
  Transmission Date: 20060501
  Serious: Yes (Hospitalization)
  Sender: FDA-Public Use
  Company Number: None

PATIENT
  Age: 87 Year
  Sex: Male
  Weight: 78.3 kg

DRUGS (9)
  1. DIGOXIN [Suspect]
     Indication: CARDIAC FAILURE CONGESTIVE
     Dosage: 0.125MG PO QD
     Route: 048
     Dates: start: 20050427, end: 20050711
  2. DIGOXIN [Suspect]
     Indication: CARDIAC FAILURE CONGESTIVE
     Dosage: 0.125MG PO QD
     Route: 048
     Dates: start: 20050711, end: 20050808
  3. ASCORBIC ACID [Concomitant]
  4. CARVEDILOL [Concomitant]
  5. CITALOPRAM [Concomitant]
  6. CLOPIDOGREL BISULFATE [Concomitant]
  7. COLCHICINE [Concomitant]
  8. FUROSEMIDE [Concomitant]
  9. LISINOPRIL [Concomitant]

REACTIONS (6)
  - BLOOD PRESSURE DECREASED [None]
  - DIARRHOEA [None]
  - FEELING COLD [None]
  - FLUID INTAKE REDUCED [None]
  - HEART RATE DECREASED [None]
  - MALAISE [None]
